FAERS Safety Report 23343314 (Version 2)
Quarter: 2024Q4

REPORT INFORMATION
  Report Type: Spontaneous
  Country: FR (occurrence: FR)
  Receive Date: 20231227
  Receipt Date: 20241105
  Transmission Date: 20250115
  Serious: Yes (Other)
  Sender: JAZZ
  Company Number: FR-JAZZ PHARMACEUTICALS-2023-FR-025306

PATIENT

DRUGS (1)
  1. XYREM [Suspect]
     Active Substance: SODIUM OXYBATE
     Indication: Product used for unknown indication
     Dosage: UNK

REACTIONS (5)
  - Product dispensing issue [Unknown]
  - Product prescribing issue [Unknown]
  - Pharmaceutical nomadism [Unknown]
  - Drug diversion [Unknown]
  - Off label use [Unknown]

NARRATIVE: CASE EVENT DATE: 20231101
